FAERS Safety Report 15770163 (Version 1)
Quarter: 2018Q4

REPORT INFORMATION
  Report Type: Spontaneous
  Country: US (occurrence: US)
  Receive Date: 20181227
  Receipt Date: 20181227
  Transmission Date: 20190205
  Serious: Yes (Hospitalization)
  Sender: FDA-Public Use
  Company Number: None

PATIENT
  Age: 46 Year
  Sex: Male

DRUGS (15)
  1. AMLODIPINE [Concomitant]
     Active Substance: AMLODIPINE BESYLATE
  2. ASPIRIN CHW 81MG [Concomitant]
  3. TACROLIMUS. [Suspect]
     Active Substance: TACROLIMUS
     Indication: RENAL TRANSPLANT
     Route: 048
     Dates: start: 20181127
  4. TACROLIMUS. [Suspect]
     Active Substance: TACROLIMUS
     Indication: RENAL TRANSPLANT
     Route: 048
     Dates: start: 20181127
  5. MIDODRINE 10MG [Concomitant]
  6. ATORVASTATIN 80MG [Concomitant]
     Active Substance: ATORVASTATIN
  7. METOPROLOL TAR 25MG [Concomitant]
     Active Substance: METOPROLOL TARTRATE
  8. PANTOPRAZOLE 40MG [Concomitant]
     Active Substance: PANTOPRAZOLE SODIUM
  9. RANITIDINE 150 [Concomitant]
     Active Substance: RANITIDINE HYDROCHLORIDE
  10. METOCLOPRAM 5MG [Concomitant]
  11. MAGNESIUM-OX 400MG [Concomitant]
  12. SENSIPAR [Concomitant]
     Active Substance: CINACALCET HYDROCHLORIDE
  13. SODIUM BICAR 10GR [Concomitant]
  14. VIRT-PHOS 250NEUT [Concomitant]
  15. FLUDROCORT 0.1MG [Concomitant]

REACTIONS (1)
  - Diabetic ketoacidosis [None]

NARRATIVE: CASE EVENT DATE: 20181130
